FAERS Safety Report 9752945 (Version 1)
Quarter: 2013Q4

REPORT INFORMATION
  Report Type: Spontaneous
  Country: FR (occurrence: FR)
  Receive Date: 20131213
  Receipt Date: 20131213
  Transmission Date: 20140711
  Serious: Yes (Hospitalization)
  Sender: FDA-Public Use
  Company Number: FR-PFIZER INC-2013350628

PATIENT
  Age: 33 Year
  Sex: Female

DRUGS (7)
  1. SYNAREL [Suspect]
     Indication: IN VITRO FERTILISATION
     Dosage: 2 DF, 2X/DAY
     Route: 045
     Dates: start: 20121018, end: 20121019
  2. GONAL-F [Suspect]
     Indication: IN VITRO FERTILISATION
     Dosage: 150 IU, 1X/DAY
     Route: 058
     Dates: start: 20121018, end: 20121025
  3. MENOPUR [Suspect]
     Indication: IN VITRO FERTILISATION
     Dosage: 225 IU, 1X/DAY
     Route: 058
     Dates: start: 20121026, end: 20121028
  4. MENOPUR [Suspect]
     Dosage: 220 IU, 1X/DAY
     Route: 058
     Dates: start: 20121029, end: 20121029
  5. OVITRELLE [Suspect]
     Indication: IN VITRO FERTILISATION
     Dosage: 1 DF, SINGLE
     Route: 058
     Dates: start: 20121030, end: 20121030
  6. UTROGESTAN [Suspect]
     Indication: IN VITRO FERTILISATION
     Dosage: 600 MG, 1X/DAY
     Route: 067
     Dates: start: 20121105
  7. ORGALUTRAN [Suspect]
     Indication: IN VITRO FERTILISATION
     Dosage: 0.25 MG, 1X/DAY
     Route: 058
     Dates: start: 20121024, end: 20121029

REACTIONS (3)
  - Ovarian hyperstimulation syndrome [Recovered/Resolved]
  - Ascites [Recovered/Resolved]
  - Pleural effusion [Recovered/Resolved]
